FAERS Safety Report 5890777-0 (Version None)
Quarter: 2008Q3

REPORT INFORMATION
  Report Type: 
  Country: None (occurrence: None)
  Receive Date: 20080922
  Receipt Date: 20080908
  Transmission Date: 20090109
  Serious: Yes (Hospitalization, Other)
  Sender: FDA-Public Use
  Company Number: US-AMGEN-QUU301582

PATIENT
  Sex: Female
  Weight: 64 kg

DRUGS (13)
  1. NEULASTA [Suspect]
     Indication: CHEMOTHERAPY
     Route: 058
     Dates: start: 20080605, end: 20080717
  2. ATENOLOL [Concomitant]
  3. HYDROCHLOROTHIAZIDE [Concomitant]
  4. REGLAN [Concomitant]
     Dates: start: 20080604, end: 20080716
  5. DEXAMETHASONE [Concomitant]
     Dates: start: 20080604, end: 20080716
  6. EMEND [Concomitant]
     Dates: start: 20080604, end: 20080716
  7. POTASSIUM CHLORIDE [Concomitant]
  8. ALOXI [Concomitant]
     Dates: start: 20080604, end: 20080716
  9. ADRIAMYCIN PFS [Concomitant]
     Dates: start: 20080604, end: 20080716
  10. HYDREA [Concomitant]
     Dates: start: 20080719
  11. CYTOXAN [Concomitant]
     Dates: start: 20080604, end: 20080716
  12. ARANESP [Concomitant]
     Dates: start: 20080716
  13. LORAZEPAM [Concomitant]
     Dates: end: 20080716

REACTIONS (6)
  - ARTERIAL STENOSIS [None]
  - CAROTID ARTERY OCCLUSION [None]
  - CEREBRAL ARTERY OCCLUSION [None]
  - CEREBROVASCULAR ACCIDENT [None]
  - MUSCULAR WEAKNESS [None]
  - WHITE BLOOD CELL COUNT INCREASED [None]
